FAERS Safety Report 22269197 (Version 2)
Quarter: 2023Q2

REPORT INFORMATION
  Report Type: Spontaneous
  Country: US (occurrence: US)
  Receive Date: 20230501
  Receipt Date: 20230512
  Transmission Date: 20230721
  Serious: No
  Sender: FDA-Public Use
  Company Number: US-002147023-NVSC2023US099345

PATIENT
  Sex: Female

DRUGS (3)
  1. OCTREOTIDE [Suspect]
     Active Substance: OCTREOTIDE
     Indication: Neoplasm malignant
     Dosage: UNK, Q4W
     Route: 065
  2. OCTREOTIDE [Suspect]
     Active Substance: OCTREOTIDE
  3. OCTREOTIDE [Suspect]
     Active Substance: OCTREOTIDE

REACTIONS (4)
  - Pain in extremity [Unknown]
  - Muscle swelling [Unknown]
  - Movement disorder [Unknown]
  - Product administered at inappropriate site [Unknown]
